FAERS Safety Report 19689555 (Version 2)
Quarter: 2021Q3

REPORT INFORMATION
  Report Type: Spontaneous
  Country: US (occurrence: US)
  Receive Date: 20210812
  Receipt Date: 20210821
  Transmission Date: 20211014
  Serious: Yes (Other)
  Sender: FDA-Public Use
  Company Number: US-AUROBINDO-AUR-APL-2021-034298

PATIENT
  Age: 54 Year
  Sex: Female
  Weight: 64.4 kg

DRUGS (2)
  1. FOLOTYN [Suspect]
     Active Substance: PRALATREXATE
     Indication: ANGIOIMMUNOBLASTIC T-CELL LYMPHOMA STAGE IV
     Dosage: UNK
     Route: 065
  2. FOLOTYN [Suspect]
     Active Substance: PRALATREXATE
     Dosage: 30
     Route: 065
     Dates: start: 201905, end: 202101

REACTIONS (2)
  - Peripheral T-cell lymphoma unspecified recurrent [Unknown]
  - Malignant neoplasm progression [Unknown]
